FAERS Safety Report 12437287 (Version 2)
Quarter: 2016Q3

REPORT INFORMATION
  Report Type: Spontaneous
  Country: IL (occurrence: IL)
  Receive Date: 20160606
  Receipt Date: 20160707
  Transmission Date: 20161109
  Serious: Yes (Other)
  Sender: FDA-Public Use
  Company Number: IL-BAXTER-2016BAX028417

PATIENT
  Age: 68 Year
  Sex: Female

DRUGS (11)
  1. NACL 0.9% USP [Suspect]
     Active Substance: SODIUM CHLORIDE
     Dosage: 0.9% 250 ML
     Route: 065
     Dates: start: 20160525, end: 20160525
  2. TAXOL [Suspect]
     Active Substance: PACLITAXEL
     Dosage: STRENGTH: 100 MG/ 16.7 ML
     Route: 065
     Dates: start: 20160525, end: 20160525
  3. RAMIPRIL. [Concomitant]
     Active Substance: RAMIPRIL
     Indication: PRODUCT USED FOR UNKNOWN INDICATION
     Route: 065
  4. DULOXETINE. [Concomitant]
     Active Substance: DULOXETINE
     Indication: PRODUCT USED FOR UNKNOWN INDICATION
     Route: 065
  5. TAXOL [Suspect]
     Active Substance: PACLITAXEL
     Indication: BREAST CANCER
     Dosage: STRENGTH: 30 MG/5 ML
     Route: 065
     Dates: start: 20160509, end: 20160509
  6. TAXOL [Suspect]
     Active Substance: PACLITAXEL
     Dosage: STRENGTH: 30 MG/5 ML
     Route: 065
     Dates: start: 20160525, end: 20160525
  7. CALCIUM [Concomitant]
     Active Substance: CALCIUM
     Indication: PRODUCT USED FOR UNKNOWN INDICATION
     Route: 065
  8. NACL 0.9% USP [Suspect]
     Active Substance: SODIUM CHLORIDE
     Indication: MEDICATION DILUTION
     Dosage: 0.9% 250 ML
     Route: 065
     Dates: start: 20160509, end: 20160509
  9. CLONEX [Concomitant]
     Indication: PRODUCT USED FOR UNKNOWN INDICATION
     Route: 065
  10. CARDILOC [Concomitant]
     Active Substance: BISOPROLOL FUMARATE
     Indication: PRODUCT USED FOR UNKNOWN INDICATION
     Route: 065
  11. FEXOFENADINE [Concomitant]
     Active Substance: FEXOFENADINE\FEXOFENADINE HYDROCHLORIDE
     Indication: PRODUCT USED FOR UNKNOWN INDICATION
     Route: 065

REACTIONS (5)
  - Asthenia [Recovered/Resolved]
  - Diarrhoea [Recovered/Resolved]
  - Feeding disorder [Recovered/Resolved]
  - Fatigue [Recovered/Resolved]
  - Dehydration [Recovered/Resolved]

NARRATIVE: CASE EVENT DATE: 201605
